FAERS Safety Report 19432229 (Version 2)
Quarter: 2021Q3

REPORT INFORMATION
  Report Type: Spontaneous
  Country: US (occurrence: US)
  Receive Date: 20210617
  Receipt Date: 20210917
  Transmission Date: 20211014
  Serious: No
  Sender: FDA-Public Use
  Company Number: US-CATALYST PHARMACEUTICALS, INC-2021CAT00144

PATIENT
  Age: 61 Year
  Sex: Female
  Weight: 71.66 kg

DRUGS (18)
  1. PREDNISONE. [Concomitant]
     Active Substance: PREDNISONE
  2. LISINOPRIL. [Concomitant]
     Active Substance: LISINOPRIL
     Dosage: 40 MG
     Dates: end: 202107
  3. LISINOPRIL. [Concomitant]
     Active Substance: LISINOPRIL
     Dosage: 20 MG
     Dates: start: 202107
  4. GUAIFENESIN. [Concomitant]
     Active Substance: GUAIFENESIN
  5. CRESTOR [Concomitant]
     Active Substance: ROSUVASTATIN CALCIUM
  6. MELATONIN [Concomitant]
     Active Substance: MELATONIN
  7. UNSPECIFIED CHRONIC SINUSITIS MEDICATION [Concomitant]
  8. FIRDAPSE [Suspect]
     Active Substance: AMIFAMPRIDINE PHOSPHATE
     Dosage: 10 MG, 3X/DAY AND INCREASE AS TOLERATED
     Route: 048
  9. NOVOCAINE [Suspect]
     Active Substance: PROCAINE
     Dosage: ^3 TIMES THE NORMAL AMOUNT^
     Dates: start: 20210407, end: 20210407
  10. MAGNESIUM [Concomitant]
     Active Substance: MAGNESIUM
  11. FIRDAPSE [Suspect]
     Active Substance: AMIFAMPRIDINE PHOSPHATE
     Indication: MYASTHENIC SYNDROME
     Dosage: 10 MG, 2X/DAY AND INCREASE AS TOLERATED
     Route: 048
     Dates: start: 20200717
  12. NOVOCAINE [Suspect]
     Active Substance: PROCAINE
     Indication: INDUCTION OF ANAESTHESIA
     Dosage: UNK
     Dates: start: 20210407, end: 20210407
  13. NEXIUM [Concomitant]
     Active Substance: ESOMEPRAZOLE MAGNESIUM
  14. CALCIUM [Concomitant]
     Active Substance: CALCIUM
  15. XYZAL [Concomitant]
     Active Substance: LEVOCETIRIZINE DIHYDROCHLORIDE
  16. FIRDAPSE [Suspect]
     Active Substance: AMIFAMPRIDINE PHOSPHATE
     Dosage: 20 MG, 4X/DAY
     Route: 048
  17. GAMMAGARD [Concomitant]
     Active Substance: HUMAN IMMUNOGLOBULIN G
  18. MYRBETRIQ [Concomitant]
     Active Substance: MIRABEGRON

REACTIONS (1)
  - Inhibitory drug interaction [Recovered/Resolved]

NARRATIVE: CASE EVENT DATE: 20210407
